FAERS Safety Report 6985745-1 (Version None)
Quarter: 2010Q3

REPORT INFORMATION
  Report Type: 
  Country: None (occurrence: None)
  Receive Date: 20100915
  Receipt Date: 20100902
  Transmission Date: 20110219
  Serious: Yes (Other)
  Sender: FDA-Public Use
  Company Number: ES-ELI_LILLY_AND_COMPANY-ES201009001128

PATIENT
  Sex: Female
  Weight: 80 kg

DRUGS (9)
  1. FORTEO [Suspect]
     Indication: OSTEOPOROSIS
     Dosage: 20 UG, DAILY (1/D)
     Route: 058
     Dates: start: 20081201, end: 20100820
  2. ESERTIA [Concomitant]
     Indication: DEPRESSION
     Dosage: UNK, DAILY (1/D)
     Route: 048
     Dates: end: 20100820
  3. IRBESARTAN [Concomitant]
     Indication: HYPERTENSION
     Dosage: UNK, DAILY (1/D)
     Route: 048
     Dates: end: 20100820
  4. AMARYL [Concomitant]
     Indication: DIABETES MELLITUS
     Dosage: UNK, DAILY (1/D)
     Route: 048
     Dates: end: 20100820
  5. IDAPTAN [Concomitant]
     Indication: HYPERTENSION
     Dosage: UNK, DAILY (1/D)
     Route: 048
     Dates: end: 20100820
  6. ARICEPT [Concomitant]
     Indication: DEMENTIA ALZHEIMER'S TYPE
     Dosage: UNK, DAILY (1/D)
     Route: 048
     Dates: end: 20100820
  7. QUETIAPINE [Concomitant]
     Indication: DEPRESSION
     Dosage: UNK, DAILY (1/D)
     Route: 048
     Dates: end: 20100820
  8. ASPIRIN [Concomitant]
     Dosage: UNK, DAILY (1/D)
     Route: 048
     Dates: end: 20100820
  9. MIZOLEN [Concomitant]
     Indication: DEMENTIA ALZHEIMER'S TYPE
     Dosage: UNK, DAILY (1/D)
     Dates: end: 20100820

REACTIONS (2)
  - DYSARTHRIA [None]
  - LIMB IMMOBILISATION [None]
